FAERS Safety Report 7281640-1 (Version None)
Quarter: 2011Q1

REPORT INFORMATION
  Report Type: 
  Country: None (occurrence: None)
  Receive Date: 20110208
  Receipt Date: 20110202
  Transmission Date: 20110831
  Serious: Yes (Death)
  Sender: FDA-Public Use
  Company Number: BE-ELI_LILLY_AND_COMPANY-BE201012001094

PATIENT
  Sex: Female
  Weight: 38.549 kg

DRUGS (2)
  1. CYMBALTA [Suspect]
     Indication: DEPRESSION
     Dosage: 60 MG, UNK
     Dates: start: 20100101
  2. BETA BLOCKING AGENTS [Concomitant]

REACTIONS (1)
  - CARDIAC FAILURE [None]
